FAERS Safety Report 8078607-2 (Version None)
Quarter: 2012Q1

REPORT INFORMATION
  Report Type: 
  Country: None (occurrence: None)
  Receive Date: 20120124
  Receipt Date: 20120110
  Transmission Date: 20120608
  Serious: Yes (Other)
  Sender: FDA-Public Use
  Company Number: 1000026059

PATIENT
  Age: 15 Year
  Sex: Female

DRUGS (22)
  1. PREDNISOLON (PREDNISOLONE) (TABLETS) (PREDNISOLONE) [Concomitant]
  2. SYMBICORT (BUDESONIDE, FORMOTEROL FUMARATE) (TABLETS) (BUDESONIDE, FOR [Concomitant]
  3. SINGULAIR (MONTELUKAST SODIUM) (MONTELUKAST SODIUM) [Concomitant]
  4. STESOLID (DIAZEPAM) (TABLETS) (DIAZEPAM) [Concomitant]
  5. PROPAVAN (PROPIOMAZINE MALEATE) (TABLETS) (PROPIOMAZINE MALEATE) [Concomitant]
  6. MELATONIN (MELATONIN) (3 MILLIGRAM, TABLETS) (MELATONIN) [Concomitant]
  7. METHOTREXAT (METHOTREXATE) (TABLETS) (METHOTREXATE) [Concomitant]
  8. KALCIPOS (CALCIUM CARBONATE) (TABLETS) (CALCIUM CARBONATE) [Concomitant]
  9. FOLACIN (FOLIC ACID) (TABLETS) (FOLIC ACID) [Concomitant]
  10. THERALEN (ALIMEMAZINE TARTRATE) (TABLETS) (ALIMEMAZINE TARTRATE) [Concomitant]
  11. ESCITALOPRAM OXALATE [Suspect]
     Indication: DEPRESSION
     Dosage: 5 MG (5 MG, 1 IN 1 D), ORAL, 10 MG (10 MG, 1 IN 1 D), ORAL, 15 MG (15 MG, 1 IN 1 D), ORAL, 20 MG (20
     Route: 048
     Dates: start: 20110101
  12. ESCITALOPRAM OXALATE [Suspect]
     Indication: DEPRESSION
     Dosage: 5 MG (5 MG, 1 IN 1 D), ORAL, 10 MG (10 MG, 1 IN 1 D), ORAL, 15 MG (15 MG, 1 IN 1 D), ORAL, 20 MG (20
     Route: 048
     Dates: start: 20110701, end: 20110801
  13. ESCITALOPRAM OXALATE [Suspect]
     Indication: DEPRESSION
     Dosage: 5 MG (5 MG, 1 IN 1 D), ORAL, 10 MG (10 MG, 1 IN 1 D), ORAL, 15 MG (15 MG, 1 IN 1 D), ORAL, 20 MG (20
     Route: 048
     Dates: start: 20091101, end: 20110701
  14. ESCITALOPRAM OXALATE [Suspect]
     Indication: DEPRESSION
     Dosage: 5 MG (5 MG, 1 IN 1 D), ORAL, 10 MG (10 MG, 1 IN 1 D), ORAL, 15 MG (15 MG, 1 IN 1 D), ORAL, 20 MG (20
     Route: 048
     Dates: start: 20110801, end: 20110101
  15. AERIUS (EBASTINE) (EBASTINE) [Concomitant]
  16. TAVEGYL (CLEMASTINE FUMARATE) (CLEMASTINE FUMURATE) [Concomitant]
  17. NIFEREX (FERROGLYCINE SULFATE COMPLEX) (TABLETS) (FERROGLYCINE SULFATE [Concomitant]
  18. PULMICORT (BUDESONIDE, FORMOTEROL FUMARATE) (TABLETS) (BUDESONIDE, FOR [Concomitant]
  19. TRADOLAN (TRAMADOL HYDROCHLORIDE) (TRAMADOL HYDROCHLORIDE) [Concomitant]
  20. IMPORTAL (LACTITOL) (LACTITOL) [Concomitant]
  21. NEXIUM (ESOMEPRAZOLE MAGNESIUM) (TABLETS) (ESOMEPRAZOLE MAGNESIUM) [Concomitant]
  22. PULMOZYME (DORNASE ALFA) (DORNASE ALFA) [Concomitant]

REACTIONS (10)
  - ANAL HAEMORRHAGE [None]
  - EPISTAXIS [None]
  - CUSHINGOID [None]
  - OVERWEIGHT [None]
  - RASH PRURITIC [None]
  - NASAL CONGESTION [None]
  - SCAB [None]
  - RASH PAPULAR [None]
  - CONDITION AGGRAVATED [None]
  - ALLERGIC GRANULOMATOUS ANGIITIS [None]
